FAERS Safety Report 5426691-4 (Version None)
Quarter: 2007Q3

REPORT INFORMATION
  Report Type: 
  Country: None (occurrence: None)
  Receive Date: 20070827
  Receipt Date: 20070815
  Transmission Date: 20080115
  Serious: Yes (Death, Hospitalization)
  Sender: FDA-Public Use
  Company Number: US-PFIZER INC-2007067071

PATIENT
  Age: 68 Year
  Sex: Male
  Weight: 93 kg

DRUGS (4)
  1. SUTENT [Suspect]
     Indication: ADENOCARCINOMA PANCREAS
     Route: 048
     Dates: start: 20070719, end: 20070728
  2. ASPIRIN [Concomitant]
  3. ENOXAPARIN SODIUM [Concomitant]
  4. IBUPROFEN [Concomitant]

REACTIONS (3)
  - DEATH [None]
  - RENAL FAILURE [None]
  - UPPER GASTROINTESTINAL HAEMORRHAGE [None]
